FAERS Safety Report 5201137-X (Version None)
Quarter: 2007Q1

REPORT INFORMATION
  Report Type: 
  Country: None (occurrence: None)
  Receive Date: 20070103
  Receipt Date: 20061207
  Transmission Date: 20070707
  Serious: Yes (Hospitalization)
  Sender: FDA-Public Use
  Company Number: DISJP-06-0609

PATIENT
  Age: 64 Year
  Sex: Male
  Weight: 78 kg

DRUGS (48)
  1. DIPRIVAN [Suspect]
     Indication: ABDOMINAL DISTENSION
     Dosage: SEE IMAGE
     Route: 042
     Dates: start: 20061025, end: 20061025
  2. DIPRIVAN [Suspect]
     Indication: ANALGESIC EFFECT
     Dosage: SEE IMAGE
     Route: 042
     Dates: start: 20061025, end: 20061025
  3. DIPRIVAN [Suspect]
     Indication: FUNGAL INFECTION
     Dosage: SEE IMAGE
     Route: 042
     Dates: start: 20061025, end: 20061025
  4. DIPRIVAN [Suspect]
     Indication: HYPOTONIA
     Dosage: SEE IMAGE
     Route: 042
     Dates: start: 20061025, end: 20061025
  5. DIPRIVAN [Suspect]
     Indication: INDUCTION AND MAINTENANCE OF ANAESTHESIA
     Dosage: SEE IMAGE
     Route: 042
     Dates: start: 20061025, end: 20061025
  6. DIPRIVAN [Suspect]
     Indication: INDUCTION OF ANAESTHESIA
     Dosage: SEE IMAGE
     Route: 042
     Dates: start: 20061025, end: 20061025
  7. DIPRIVAN [Suspect]
     Indication: INFECTION PROPHYLAXIS
     Dosage: SEE IMAGE
     Route: 042
     Dates: start: 20061025, end: 20061025
  8. DIPRIVAN [Suspect]
     Indication: INSOMNIA
     Dosage: SEE IMAGE
     Route: 042
     Dates: start: 20061025, end: 20061025
  9. DIPRIVAN [Suspect]
     Indication: LOCAL ANAESTHESIA
     Dosage: SEE IMAGE
     Route: 042
     Dates: start: 20061025, end: 20061025
  10. DIPRIVAN [Suspect]
     Indication: POSTOPERATIVE ANALGESIA
     Dosage: SEE IMAGE
     Route: 042
     Dates: start: 20061025, end: 20061025
  11. DIPRIVAN [Suspect]
     Indication: PROPHYLAXIS
     Dosage: SEE IMAGE
     Route: 042
     Dates: start: 20061025, end: 20061025
  12. DIPRIVAN [Suspect]
     Indication: SPUTUM RETENTION
     Dosage: SEE IMAGE
     Route: 042
     Dates: start: 20061025, end: 20061025
  13. DIPRIVAN [Suspect]
     Indication: TINEA PEDIS
     Dosage: SEE IMAGE
     Route: 042
     Dates: start: 20061025, end: 20061025
  14. DIPRIVAN [Suspect]
     Indication: ABDOMINAL DISTENSION
     Dosage: SEE IMAGE
     Route: 042
     Dates: start: 20061025, end: 20061025
  15. DIPRIVAN [Suspect]
     Indication: ANALGESIC EFFECT
     Dosage: SEE IMAGE
     Route: 042
     Dates: start: 20061025, end: 20061025
  16. DIPRIVAN [Suspect]
     Indication: FUNGAL INFECTION
     Dosage: SEE IMAGE
     Route: 042
     Dates: start: 20061025, end: 20061025
  17. DIPRIVAN [Suspect]
     Indication: HYPOTONIA
     Dosage: SEE IMAGE
     Route: 042
     Dates: start: 20061025, end: 20061025
  18. DIPRIVAN [Suspect]
     Indication: INDUCTION AND MAINTENANCE OF ANAESTHESIA
     Dosage: SEE IMAGE
     Route: 042
     Dates: start: 20061025, end: 20061025
  19. DIPRIVAN [Suspect]
     Indication: INDUCTION OF ANAESTHESIA
     Dosage: SEE IMAGE
     Route: 042
     Dates: start: 20061025, end: 20061025
  20. DIPRIVAN [Suspect]
     Indication: INFECTION PROPHYLAXIS
     Dosage: SEE IMAGE
     Route: 042
     Dates: start: 20061025, end: 20061025
  21. DIPRIVAN [Suspect]
     Indication: INSOMNIA
     Dosage: SEE IMAGE
     Route: 042
     Dates: start: 20061025, end: 20061025
  22. DIPRIVAN [Suspect]
     Indication: LOCAL ANAESTHESIA
     Dosage: SEE IMAGE
     Route: 042
     Dates: start: 20061025, end: 20061025
  23. DIPRIVAN [Suspect]
     Indication: POSTOPERATIVE ANALGESIA
     Dosage: SEE IMAGE
     Route: 042
     Dates: start: 20061025, end: 20061025
  24. DIPRIVAN [Suspect]
     Indication: PROPHYLAXIS
     Dosage: SEE IMAGE
     Route: 042
     Dates: start: 20061025, end: 20061025
  25. DIPRIVAN [Suspect]
     Indication: SPUTUM RETENTION
     Dosage: SEE IMAGE
     Route: 042
     Dates: start: 20061025, end: 20061025
  26. DIPRIVAN [Suspect]
     Indication: TINEA PEDIS
     Dosage: SEE IMAGE
     Route: 042
     Dates: start: 20061025, end: 20061025
  27. KETALAR [Concomitant]
  28. ROXATIDINE ACETATE HCL [Concomitant]
  29. RHYTHMY (RILMAZAFONE) [Concomitant]
  30. FENTANEST (FENTANYL CITRATE) (INJECTION FOR INFUSION) [Concomitant]
  31. MUSCULAX (VECURONIUM BROMIDE) (INJECTION FOR INFUSION) [Concomitant]
  32. MARCAIN INJECTION (BUPIVACAINE HYDROCHLORIDE) [Concomitant]
  33. HALOSPOR (CEFOTIAM HYDROCHLORIDE) (INJECTION FOR INFUSION) [Concomitant]
  34. DECADRON [Concomitant]
  35. LEPETAN (BUPRENORPHINE HYDROCHLORIDE) [Concomitant]
  36. VOLTAREN [Concomitant]
  37. VEEN-F (EUFUSOL) [Concomitant]
  38. SEISHOKU (SODIUM CHLORIDE) [Concomitant]
  39. LORCAM (LORNOXICAM) [Concomitant]
  40. NICHOLASE (SERRAPEPTASE) [Concomitant]
  41. METHYLCOBAL (MECOBALAMIN) [Concomitant]
  42. SOLON (SOFALCONE) [Concomitant]
  43. HALCION [Concomitant]
  44. LAMISIL [Concomitant]
  45. LENDORM [Concomitant]
  46. BISOLVON (BROMHEXINE HYDROCHLORIDE) [Concomitant]
  47. BIO-THREE (BIO THREE) [Concomitant]
  48. GRISETIN V (GRISEOFULVIN) [Concomitant]

REACTIONS (10)
  - ANOREXIA [None]
  - CHOLESTASIS [None]
  - CONDITION AGGRAVATED [None]
  - HAEMORRHAGE [None]
  - HEPATIC STEATOSIS [None]
  - HEPATOCELLULAR DAMAGE [None]
  - MALAISE [None]
  - POST PROCEDURAL COMPLICATION [None]
  - PROCEDURAL NAUSEA [None]
  - WHITE BLOOD CELL COUNT INCREASED [None]
